FAERS Safety Report 16691341 (Version 1)
Quarter: 2019Q3

REPORT INFORMATION
  Report Type: Spontaneous
  Country: US (occurrence: US)
  Receive Date: 20190812
  Receipt Date: 20190812
  Transmission Date: 20191004
  Serious: Yes (Hospitalization, Other)
  Sender: FDA-Public Use
  Company Number: US-LUPIN PHARMACEUTICALS INC.-2019-03651

PATIENT
  Age: 15 Year
  Sex: Male

DRUGS (1)
  1. FLUOXETINE TABLETS, 20 MG [Suspect]
     Active Substance: FLUOXETINE HYDROCHLORIDE
     Indication: PRODUCT USED FOR UNKNOWN INDICATION
     Dosage: 25 DOSAGE FORM  (500 MG)
     Route: 048

REACTIONS (3)
  - Intentional overdose [Unknown]
  - Seizure [Recovered/Resolved]
  - Serotonin syndrome [Recovered/Resolved]
